FAERS Safety Report 9024633 (Version 2)
Quarter: 2014Q2

REPORT INFORMATION
  Report Type: Spontaneous
  Country: JP (occurrence: JP)
  Receive Date: 20130120
  Receipt Date: 20140529
  Transmission Date: 20141212
  Serious: Yes (Hospitalization)
  Sender: FDA-Public Use
  Company Number: PHHY2013JP004490

PATIENT
  Sex: Female
  Weight: 10 kg

DRUGS (5)
  1. CEFTRIAXONE [Suspect]
     Indication: UPPER RESPIRATORY TRACT INFLAMMATION
     Dosage: 500 MG, UNK
     Route: 042
  2. BETAMIPRON W/ PANIPENEM [Concomitant]
  3. HUMAN SERUM ALBUMIN [Concomitant]
  4. ACETAMINOPHEN [Concomitant]
  5. CEFCAPENE PIVOXIL HYDROCHLORIDE [Concomitant]

REACTIONS (5)
  - Renal failure acute [Recovering/Resolving]
  - Oedema [Recovering/Resolving]
  - Oliguria [Recovering/Resolving]
  - Kidney fibrosis [Recovering/Resolving]
  - Tubulointerstitial nephritis [Recovering/Resolving]
